FAERS Safety Report 7221345-6 (Version None)
Quarter: 2011Q1

REPORT INFORMATION
  Report Type: 
  Country: None (occurrence: None)
  Receive Date: 20110103
  Receipt Date: 20101217
  Transmission Date: 20110831
  Serious: Yes (Hospitalization)
  Sender: FDA-Public Use
  Company Number: TCI2010A05605

PATIENT
  Age: 78 Year
  Sex: Male

DRUGS (9)
  1. COVERSYL (PERINDOPRIL REBUMINE) [Suspect]
     Indication: HYPERTENSION
     Dosage: 4 MG (4 MG, 1 IN 1 D), PER ORAL
     Route: 048
     Dates: start: 20090511, end: 20091214
  2. TRANSAMIN (TRANEXAMIC ACID) [Suspect]
     Indication: UPPER RESPIRATORY TRACT INFLAMMATION
     Dosage: 750 MG (250 MG, 3 IN 1 D), PER ORAL
     Route: 048
     Dates: start: 20091019, end: 20091028
  3. PREMINENT (HYDROCHLOROTHIAZIDE, LOSARTAN POTASSIUM) [Suspect]
     Indication: HYPERTENSION
     Dosage: 1 TAB (1 TAB, 1 IN 1 D), PER ORAL
     Route: 048
     Dates: start: 20091214
  4. FLUITRAN (TRICHLORMETHIAZIDE) [Suspect]
     Indication: HYPERTENSION
     Dosage: 1 MG (1 MG, 1 IN 1 D), PER ORAL
     Route: 048
     Dates: start: 20090713, end: 20091214
  5. ACTOS [Suspect]
     Indication: TYPE 2 DIABETES MELLITUS
     Dosage: 15 MG (15 MG, 1 IN 1 D), PER ORAL
     Route: 048
     Dates: start: 20091214
  6. NIVADIL (NILVADIPINE) [Suspect]
     Indication: HYPERTENSION
     Dosage: 2 MG (2 MG, 1 IN 1 D), PER ORAL
     Route: 048
     Dates: start: 20091019, end: 20091214
  7. MEDICON (DEXTROMETHORPHAN HYDROBROMIDE) [Suspect]
     Indication: UPPER RESPIRATORY TRACT INFLAMMATION
     Dosage: 45 MG (15 MG, 3 IN 1 D), PER ORAL
     Route: 048
     Dates: start: 20091019, end: 20091028
  8. MYSLEE (ZOLPIDEM TARTRATE) [Suspect]
     Indication: INSOMNIA
     Dosage: 5 MG (5 MG, 1 IN 1 D), PER ORAL
     Route: 048
     Dates: start: 20090511
  9. NOVORAPID 30 MIX (INSULIN ASPART) [Concomitant]

REACTIONS (1)
  - GASTRIC CANCER [None]
